FAERS Safety Report 9908757 (Version 1)
Quarter: 2014Q1

REPORT INFORMATION
  Report Type: Spontaneous
  Country: SE (occurrence: None)
  Receive Date: 20140212
  Receipt Date: 20140212
  Transmission Date: 20141002
  Serious: Yes (Death)
  Sender: FDA-Public Use
  Company Number: 2014P1000955

PATIENT
  Age: 49 Year
  Sex: Male

DRUGS (4)
  1. CITALOPRAM [Suspect]
     Dosage: UNKNOWN-UNKNOWN THERAPY DATES
  2. PROPIOMAZINE [Suspect]
     Dosage: UNKNOWN-UNKNOWN THERAPY DATES
  3. ZOPICLONE [Suspect]
     Dosage: UNKNOWN-UNKNOWN THERAPY DATES
  4. ETHANOL [Suspect]
     Dosage: UNKNOWN-UNKNOWN THERAPY DATES

REACTIONS (2)
  - Poisoning [None]
  - Accidental death [None]
